FAERS Safety Report 4790074-0 (Version None)
Quarter: 2005Q4

REPORT INFORMATION
  Report Type: 
  Country: None (occurrence: None)
  Receive Date: 20051005
  Receipt Date: 20051005
  Transmission Date: 20060501
  Serious: Yes (Hospitalization)
  Sender: FDA-Public Use
  Company Number: None

PATIENT
  Age: 26 Year
  Sex: Male

DRUGS (4)
  1. CLOFARABINE [Suspect]
     Indication: LYMPHOMA
     Dosage: 4 MG/M2 Q DX 5
     Dates: start: 20050926, end: 20050930
  2. VALTREX [Concomitant]
  3. FLUCONAZOLE [Concomitant]
  4. ALLOPURINOL PROPHYLAXIS [Concomitant]

REACTIONS (6)
  - DYSPNOEA [None]
  - HAEMOGLOBIN DECREASED [None]
  - PCO2 INCREASED [None]
  - PLEURAL EFFUSION [None]
  - PO2 DECREASED [None]
  - WHITE BLOOD CELL COUNT INCREASED [None]
